FAERS Safety Report 8815121 (Version 2)
Quarter: 2013Q2

REPORT INFORMATION
  Report Type: Report from Study
  Country: JP (occurrence: JP)
  Receive Date: 20120928
  Receipt Date: 20130523
  Transmission Date: 20140414
  Serious: Yes (Hospitalization)
  Sender: FDA-Public Use
  Company Number: JP-VERTEX PHARMACEUTICAL INC.-2012-021946

PATIENT
  Age: 64 Year
  Sex: Female

DRUGS (11)
  1. VX-950 (TELAPREVIR) [Suspect]
     Indication: CHRONIC HEPATITIS C
     Dosage: 1500 MG, QD
     Route: 048
     Dates: start: 20120724
  2. RIBAVIRIN [Suspect]
     Indication: CHRONIC HEPATITIS C
     Dosage: 400 MG, QD
     Route: 048
     Dates: start: 20120724, end: 20120813
  3. RIBAVIRIN [Suspect]
     Dosage: 200 MG, QD
     Route: 048
     Dates: start: 20120814, end: 20120827
  4. RIBAVIRIN [Suspect]
     Dosage: 200 MG ON ALTERNATE DAYS
     Route: 048
     Dates: start: 20120828
  5. PEGINTERFERON ALFA-2B [Concomitant]
     Dosage: 1.5 ?G/KG, QW
     Route: 058
     Dates: start: 20120724
  6. AMARYL [Concomitant]
     Dosage: 2 MG, QD
     Route: 048
  7. MELBIN                             /00082702/ [Concomitant]
     Dosage: 500 MG, QD
     Route: 048
  8. BASEN [Concomitant]
     Dosage: 0.9 MG, QD
     Route: 048
  9. THYRADIN-S [Concomitant]
     Dosage: 50 ?G, QD
     Route: 048
  10. FOLIAMIN [Concomitant]
     Dosage: 10 MG, QD
     Route: 048
     Dates: start: 20120807
  11. AMLODIN [Concomitant]
     Dosage: 2.5 MG, QD
     Route: 048

REACTIONS (1)
  - Pyelonephritis [Recovered/Resolved]
